FAERS Safety Report 8967230 (Version 2)
Quarter: 2013Q1

REPORT INFORMATION
  Report Type: Report from Study
  Country: CA (occurrence: CA)
  Receive Date: 20121217
  Receipt Date: 20130311
  Transmission Date: 20140127
  Serious: Yes (Hospitalization, Disabling, Other)
  Sender: FDA-Public Use
  Company Number: CA-JNJFOC-20121203505

PATIENT
  Age: 25 Year
  Sex: Female
  Weight: 50.2 kg

DRUGS (8)
  1. REMICADE [Suspect]
     Indication: CROHN^S DISEASE
     Route: 042
     Dates: start: 20121011
  2. REMICADE [Suspect]
     Indication: CROHN^S DISEASE
     Route: 042
     Dates: start: 20120822
  3. FLAGYL [Concomitant]
     Route: 065
  4. CIPRO [Concomitant]
     Route: 065
  5. FILGRASTIM [Concomitant]
     Route: 065
  6. PREDNISONE [Concomitant]
     Route: 065
  7. THYROID PREPARATIONS [Concomitant]
     Route: 065
  8. LEVOTHYROXINE [Concomitant]
     Route: 065

REACTIONS (1)
  - Intestinal resection [Unknown]
